FAERS Safety Report 4639329-0 (Version None)
Quarter: 2005Q2

REPORT INFORMATION
  Report Type: 
  Country: None (occurrence: None)
  Receive Date: 20050418
  Receipt Date: 20050406
  Transmission Date: 20051028
  Serious: Yes (Other)
  Sender: FDA-Public Use
  Company Number: 2005055621

PATIENT
  Age: 18 Year
  Sex: Female
  Weight: 75.2971 kg

DRUGS (4)
  1. ZOLOFT [Suspect]
     Indication: MENTAL DISORDER
     Dosage: 100 MG (100 MG, 1 IN 1 D), ORAL
     Route: 048
     Dates: start: 20040101, end: 20050405
  2. GEODON [Suspect]
     Indication: DEPRESSED MOOD
     Dosage: 60 MG (60 MG, 1 IN 1 D), ORAL
     Route: 048
     Dates: start: 20040101, end: 20050405
  3. QUETIAPINE FUMARATE [Suspect]
     Indication: ILL-DEFINED DISORDER
     Dosage: 300 MG (1 IN 1 D), ORAL
     Route: 048
     Dates: start: 20040101, end: 20050401
  4. FOLIC ACID [Concomitant]

REACTIONS (13)
  - APPETITE DISORDER [None]
  - DEHYDRATION [None]
  - DENTAL CARIES [None]
  - DEPRESSION [None]
  - DRY MOUTH [None]
  - GASTRIC DISORDER [None]
  - HEADACHE [None]
  - MOOD SWINGS [None]
  - NAUSEA [None]
  - POST PROCEDURAL HAEMORRHAGE [None]
  - POST PROCEDURAL PAIN [None]
  - VOMITING [None]
  - WEIGHT DECREASED [None]
